FAERS Safety Report 5669370-0 (Version None)
Quarter: 2008Q1

REPORT INFORMATION
  Report Type: 
  Country: None (occurrence: None)
  Receive Date: 20080317
  Receipt Date: 20080312
  Transmission Date: 20080703
  Serious: Yes (Hospitalization)
  Sender: FDA-Public Use
  Company Number: DE-MERCK-0803DEU00016

PATIENT
  Age: 72 Year
  Sex: Male

DRUGS (3)
  1. HYZAAR [Suspect]
     Indication: HYPERTENSION
     Route: 065
     Dates: start: 19980101, end: 20080201
  2. PHENPROCOUMON [Concomitant]
     Route: 048
     Dates: start: 19930101
  3. ALUMINUM HYDROXIDE AND MAGNESIUM HYDROXIDE [Suspect]
     Indication: GASTROOESOPHAGEAL REFLUX DISEASE
     Route: 048
     Dates: start: 20080101, end: 20080301

REACTIONS (3)
  - DRUG HYPERSENSITIVITY [None]
  - GASTROOESOPHAGEAL REFLUX DISEASE [None]
  - RASH [None]
